FAERS Safety Report 6687178-4 (Version None)
Quarter: 2010Q2

REPORT INFORMATION
  Report Type: 
  Country: None (occurrence: None)
  Receive Date: 20100414
  Receipt Date: 20100406
  Transmission Date: 20101027
  Serious: Yes (Life-Threatening)
  Sender: FDA-Public Use
  Company Number: JP-2010-0640

PATIENT
  Sex: Male

DRUGS (9)
  1. NAVELBINE [Suspect]
     Indication: LUNG CARCINOMA CELL TYPE UNSPECIFIED STAGE III
     Dosage: 33 MG IV
     Route: 042
     Dates: start: 20100223, end: 20100302
  2. BRIPLATIN [Concomitant]
  3. OXYCONTIN [Concomitant]
  4. PRIMPERAN [Concomitant]
  5. OXINORM [Concomitant]
  6. PROCHLORPERAZINE [Concomitant]
  7. MAGLAX [Concomitant]
  8. MUCOSTA [Concomitant]
  9. LOXONIN [Concomitant]

REACTIONS (6)
  - ELECTROCARDIOGRAM ST SEGMENT DEPRESSION [None]
  - HYPOPHAGIA [None]
  - LOSS OF CONSCIOUSNESS [None]
  - PLATELET COUNT DECREASED [None]
  - PRINZMETAL ANGINA [None]
  - VENTRICULAR FIBRILLATION [None]
